FAERS Safety Report 25993896 (Version 4)
Quarter: 2025Q4

REPORT INFORMATION
  Report Type: Spontaneous
  Country: JP (occurrence: JP)
  Receive Date: 20251104
  Receipt Date: 20251212
  Transmission Date: 20260118
  Serious: Yes (Hospitalization)
  Sender: AMGEN
  Company Number: JP-KYOWAKIRIN-2025KK020514

PATIENT
  Sex: Female

DRUGS (6)
  1. DARBEPOETIN ALFA [Suspect]
     Active Substance: DARBEPOETIN ALFA
     Indication: Nephrogenic anaemia
     Dosage: UNK
     Route: 065
     Dates: end: 2024
  2. DARBEPOETIN ALFA [Suspect]
     Active Substance: DARBEPOETIN ALFA
     Dosage: 60 UG
     Route: 058
     Dates: start: 20250625, end: 2025
  3. DARBEPOETIN ALFA [Suspect]
     Active Substance: DARBEPOETIN ALFA
     Dosage: 120 UG, 1X/MONTH
     Route: 058
     Dates: start: 20250714, end: 20250919
  4. DAPRODUSTAT [Suspect]
     Active Substance: DAPRODUSTAT
     Indication: Nephrogenic anaemia
     Dosage: 4 MG, QD
     Route: 048
     Dates: start: 202502, end: 202505
  5. DAPRODUSTAT [Suspect]
     Active Substance: DAPRODUSTAT
     Dosage: 2 MG, QD
     Route: 048
     Dates: start: 20241220, end: 2025
  6. ENARODUSTAT [Concomitant]
     Active Substance: ENARODUSTAT
     Indication: Nephrogenic anaemia
     Dosage: UNK
     Route: 065
     Dates: start: 202505, end: 202506

REACTIONS (6)
  - Therapeutic response decreased [Not Recovered/Not Resolved]
  - Drug ineffective [Unknown]
  - Liver transplant [Unknown]
  - Haemoglobin decreased [Unknown]
  - Hypersplenism [Unknown]
  - Pruritus [Recovered/Resolved]

NARRATIVE: CASE EVENT DATE: 20250501
